FAERS Safety Report 4514233-7 (Version None)
Quarter: 2004Q4

REPORT INFORMATION
  Report Type: 
  Country: None (occurrence: None)
  Receive Date: 20041126
  Receipt Date: 20041116
  Transmission Date: 20050328
  Serious: Yes (Hospitalization)
  Sender: FDA-Public Use
  Company Number: 200421018BWH

PATIENT
  Age: 54 Year
  Sex: Male

DRUGS (8)
  1. LEVITRA [Suspect]
     Dosage: 10 MG, PRN, ORAL
     Route: 048
     Dates: start: 20041101
  2. LEVITRA [Suspect]
     Dosage: 10 MG, PRN, ORAL
     Route: 048
     Dates: start: 20041111
  3. COREG [Concomitant]
  4. LASIX [Concomitant]
  5. AMIODARONE HCL [Concomitant]
  6. POTASSIUM SUPPLEMENT [Concomitant]
  7. ALDOSTERONE [Concomitant]
  8. MILRINONE [Concomitant]

REACTIONS (3)
  - CARDIAC FAILURE [None]
  - HYPOTENSION [None]
  - RENAL FAILURE [None]
